FAERS Safety Report 8905149 (Version 5)
Quarter: 2013Q2

REPORT INFORMATION
  Report Type: Report from Study
  Country: US (occurrence: US)
  Receive Date: 20121112
  Receipt Date: 20130524
  Transmission Date: 20140414
  Serious: Yes (Hospitalization)
  Sender: FDA-Public Use
  Company Number: PHEH2012US022093

PATIENT
  Sex: Female

DRUGS (3)
  1. GLEEVEC [Suspect]
     Indication: MYELODYSPLASTIC SYNDROME
     Dosage: 400 MG, DAILY
     Route: 048
     Dates: start: 20120913
  2. GLEEVEC [Suspect]
     Dosage: 400 MG, DAILY
     Route: 048
     Dates: start: 20130131
  3. GLEEVEC [Suspect]
     Dosage: 400 MG, DAILY
     Route: 048
     Dates: start: 201209

REACTIONS (8)
  - Fall [Unknown]
  - Rib fracture [Unknown]
  - Hand fracture [Unknown]
  - Pain [Unknown]
  - Muscle spasms [Unknown]
  - Malaise [Unknown]
  - Arthritis [Unknown]
  - Hand deformity [Unknown]
